FAERS Safety Report 8593741-6 (Version None)
Quarter: 2012Q3

REPORT INFORMATION
  Report Type: 
  Country: None (occurrence: None)
  Receive Date: 20120814
  Receipt Date: 20120809
  Transmission Date: 20120928
  Serious: Yes (Other)
  Sender: FDA-Public Use
  Company Number: JP-VERTEX PHARMACEUTICALS INC.-AE-2012-009730

PATIENT
  Age: 59 Year
  Sex: Male

DRUGS (9)
  1. TELAVIC [Suspect]
     Route: 048
     Dates: start: 20120516, end: 20120519
  2. RIBAVIRIN [Concomitant]
     Route: 048
     Dates: start: 20120516, end: 20120523
  3. ALFAROL [Concomitant]
     Route: 048
     Dates: start: 20120502, end: 20120523
  4. TELAVIC [Suspect]
     Indication: HEPATITIS C
     Route: 048
     Dates: start: 20120502, end: 20120509
  5. TALION [Concomitant]
     Route: 048
     Dates: start: 20120502, end: 20120523
  6. RIBAVIRIN [Concomitant]
     Route: 048
     Dates: start: 20120502, end: 20120509
  7. PEGINTERFERON ALFA-2B [Concomitant]
     Route: 058
     Dates: start: 20120502, end: 20120523
  8. ALLOPURINOL [Concomitant]
     Route: 048
     Dates: start: 20120509, end: 20120625
  9. URSO 250 [Concomitant]
     Route: 048

REACTIONS (2)
  - RENAL IMPAIRMENT [None]
  - HYPERURICAEMIA [None]
